FAERS Safety Report 10408190 (Version 7)
Quarter: 2016Q1

REPORT INFORMATION
  Report Type: Report from Study
  Country: BR (occurrence: BR)
  Receive Date: 20140826
  Receipt Date: 20160111
  Transmission Date: 20160525
  Serious: Yes (Hospitalization)
  Sender: FDA-Public Use
  Company Number: BR-ROCHE-1430223

PATIENT
  Age: 61 Year
  Sex: Female
  Weight: 53.5 kg

DRUGS (23)
  1. PANTOPRAZOLE [Concomitant]
     Active Substance: PANTOPRAZOLE SODIUM
     Dosage: EVERY DAY, IN THE MORNING
     Route: 065
  2. ENDOFOLIN [Concomitant]
     Active Substance: FOLIC ACID
     Dosage: EVERY TUESDAYS, ONE TABLET A DAY IN THE MORNING
     Route: 065
  3. MABTHERA [Suspect]
     Active Substance: RITUXIMAB
     Route: 042
     Dates: start: 20130529
  4. ONBRIZE [Concomitant]
     Active Substance: INDACATEROL MALEATE
     Dosage: A CAPSULE THAT SHE ASPIRATES, EVERY DAY IN THE MORNING
     Route: 065
  5. MABTHERA [Suspect]
     Active Substance: RITUXIMAB
     Route: 042
     Dates: start: 20130612
  6. SYNTHROID [Concomitant]
     Active Substance: LEVOTHYROXINE SODIUM
     Indication: AUTOIMMUNE THYROIDITIS
     Dosage: IN FASTING AND IN THE MORNING
     Route: 065
  7. ACETYLCYSTEINE. [Concomitant]
     Active Substance: ACETYLCYSTEINE
     Dosage: 1 SACHET, TWO A DAY
     Route: 065
  8. MABTHERA [Suspect]
     Active Substance: RITUXIMAB
     Indication: RHEUMATOID ARTHRITIS
     Route: 042
     Dates: start: 20120202
  9. MABTHERA [Suspect]
     Active Substance: RITUXIMAB
     Route: 042
     Dates: start: 20131119
  10. MABTHERA [Suspect]
     Active Substance: RITUXIMAB
     Indication: SJOGREN^S SYNDROME
     Route: 042
     Dates: start: 20120217
  11. MABTHERA [Suspect]
     Active Substance: RITUXIMAB
     Route: 042
     Dates: start: 20131205
  12. MABTHERA [Suspect]
     Active Substance: RITUXIMAB
     Route: 042
     Dates: start: 20140711, end: 20150323
  13. FLUIR [Concomitant]
     Active Substance: FORMOTEROL FUMARATE
     Dosage: IN THE MORNING AND AT NIGHT
     Route: 065
  14. XALATAN [Concomitant]
     Active Substance: LATANOPROST
     Indication: GLAUCOMA
     Route: 065
  15. CALDE [Concomitant]
     Active Substance: CALCIUM CARBONATE\CHOLECALCIFEROL
     Dosage: AFTER BREAKFAST AND AFTER DINNER
     Route: 065
  16. MABTHERA [Suspect]
     Active Substance: RITUXIMAB
     Route: 042
     Dates: start: 20120718
  17. DIGESAN [Concomitant]
     Active Substance: BROMOPRIDE
     Route: 065
  18. SALINE ORAL OTC [Concomitant]
     Active Substance: SODIUM CHLORIDE
     Dosage: NEBULAZATION
     Route: 065
  19. MABTHERA [Suspect]
     Active Substance: RITUXIMAB
     Indication: AUTOIMMUNE THYROIDITIS
     Route: 042
     Dates: start: 20120704
  20. TECNOMET [Concomitant]
     Active Substance: METHOTREXATE
     Dosage: EVERY MONDAY, AFTER BREAKFAST, 4 TABLETS A DAY IN THE MORNING
     Route: 065
  21. ATROVENT [Concomitant]
     Active Substance: IPRATROPIUM BROMIDE
     Route: 065
  22. MABTHERA [Suspect]
     Active Substance: RITUXIMAB
     Route: 042
     Dates: start: 20140626
  23. ATORVASTATIN [Concomitant]
     Active Substance: ATORVASTATIN
     Dosage: 12 TABLETS AT NIGHT
     Route: 065

REACTIONS (9)
  - Pyrexia [Unknown]
  - Drug dose omission [Unknown]
  - Musculoskeletal stiffness [Recovered/Resolved]
  - Rheumatoid arthritis [Not Recovered/Not Resolved]
  - Pneumonia [Recovered/Resolved]
  - Cholelithiasis [Recovered/Resolved]
  - Feeding disorder [Recovered/Resolved]
  - Headache [Recovered/Resolved]
  - Bronchiectasis [Not Recovered/Not Resolved]

NARRATIVE: CASE EVENT DATE: 201406
